FAERS Safety Report 8810632 (Version 1)
Quarter: 2012Q4

REPORT INFORMATION
  Report Type: Spontaneous
  Country: US (occurrence: None)
  Receive Date: 20120924
  Receipt Date: 20120924
  Transmission Date: 20130627
  Serious: Yes (Disabling)
  Sender: FDA-Public Use
  Company Number: None

PATIENT
  Age: 62 Year
  Sex: Male
  Weight: 95.5 kg

DRUGS (1)
  1. METOPROLOL TARTRATE [Suspect]
     Dosage: 1/2 tablet 2x a day oral
     Route: 048
     Dates: start: 20111003, end: 20111020

REACTIONS (3)
  - Erectile dysfunction [None]
  - Pain in extremity [None]
  - Gait disturbance [None]
